FAERS Safety Report 8978966 (Version 1)
Quarter: 2012Q4

REPORT INFORMATION
  Report Type: 
  Country: AU (occurrence: AU)
  Receive Date: 20121221
  Receipt Date: 20121221
  Transmission Date: 20130627
  Serious: Yes (Death, Other)
  Sender: FDA-Public Use
  Company Number: AU-B.I. PHARMACEUTICALS,INC./RIDGEFIELD-2012-AU-02001AU

PATIENT
  Age: 71 Year
  Sex: Female

DRUGS (5)
  1. PRADAXA [Suspect]
     Indication: CEREBROVASCULAR ACCIDENT PROPHYLAXIS
     Dosage: 220 mg
     Dates: start: 20111013
  2. PRADAXA [Suspect]
     Indication: ATRIAL FIBRILLATION
  3. OXYCONTIN [Concomitant]
     Indication: PAIN
  4. ENDONE [Concomitant]
     Indication: PAIN
  5. CHEMOTHERAPEUTICS [Concomitant]
     Indication: BREAST CANCER

REACTIONS (1)
  - Breast cancer metastatic [Fatal]
